FAERS Safety Report 18243204 (Version 2)
Quarter: 2020Q4

REPORT INFORMATION
  Report Type: Spontaneous
  Country: US (occurrence: US)
  Receive Date: 20200908
  Receipt Date: 20201012
  Transmission Date: 20210113
  Serious: No
  Sender: FDA-Public Use
  Company Number: US-BAYER-2020-189068

PATIENT
  Age: 64 Year
  Sex: Female

DRUGS (1)
  1. CLIMARA [Suspect]
     Active Substance: ESTRADIOL
     Indication: HORMONE REPLACEMENT THERAPY
     Dosage: UNK
     Route: 062
     Dates: start: 2008

REACTIONS (4)
  - Application site erythema [Not Recovered/Not Resolved]
  - Product physical consistency issue [None]
  - Application site rash [Not Recovered/Not Resolved]
  - Product physical issue [None]

NARRATIVE: CASE EVENT DATE: 202009
